FAERS Safety Report 7677167-5 (Version None)
Quarter: 2011Q3

REPORT INFORMATION
  Report Type: 
  Country: None (occurrence: None)
  Receive Date: 20110811
  Receipt Date: 20110804
  Transmission Date: 20111222
  Serious: Yes (Hospitalization)
  Sender: FDA-Public Use
  Company Number: US-ELI_LILLY_AND_COMPANY-US201106000262

PATIENT
  Sex: Male
  Weight: 76.644 kg

DRUGS (8)
  1. PEMETREXED [Suspect]
     Indication: NON-SMALL CELL LUNG CANCER STAGE IV
     Dosage: 500 MG/M2, IV EVERY 21 DAYS
     Route: 042
     Dates: start: 20110519
  2. CARBOPLATIN [Suspect]
     Indication: NON-SMALL CELL LUNG CANCER STAGE IV
     Dosage: 6 AUC, IV EVERY 21 DAYS
     Route: 042
     Dates: start: 20110519
  3. FOLIC ACID [Concomitant]
     Indication: PROPHYLAXIS
     Dosage: UNK
     Dates: start: 20110511
  4. ALTACE [Concomitant]
     Indication: HYPERTENSION
     Dosage: UNK
     Dates: start: 20000101
  5. SENOKOT [Concomitant]
     Indication: CONSTIPATION
     Dosage: UNK
     Dates: start: 20110525
  6. CILOSTAZOL [Suspect]
     Dosage: UNK
     Dates: start: 20000101
  7. VITAMIN B 12 LICHTENSTEIN [Concomitant]
     Indication: PROPHYLAXIS
     Dosage: UNK
     Dates: start: 20110511
  8. DILAUDID [Concomitant]
     Indication: PAIN
     Dosage: UNK
     Dates: start: 20110511

REACTIONS (2)
  - HAEMATOMA [None]
  - THROMBOCYTOPENIA [None]
